FAERS Safety Report 10247275 (Version 2)
Quarter: 2014Q3

REPORT INFORMATION
  Report Type: Spontaneous
  Country: AU (occurrence: None)
  Receive Date: 20140617
  Receipt Date: 20140708
  Transmission Date: 20150326
  Serious: Yes (Life-Threatening, Hospitalization)
  Sender: FDA-Public Use
  Company Number: AUR-APL-2014-06452

PATIENT
  Age: 66 Year
  Sex: Female

DRUGS (8)
  1. ASPIRIN (ACETYLSALICYLIC ACID) [Concomitant]
     Active Substance: ASPIRIN
  2. METFORMIN (METFORMIN) UNKNOWN, UNKNOWN [Suspect]
     Active Substance: METFORMIN HYDROCHLORIDE
     Indication: TYPE 2 DIABETES MELLITUS
  3. GLICLAZIDE (GLICLAZIDE) [Concomitant]
     Active Substance: GLICLAZIDE
  4. VANCOMYCIN (VANCOMYCIN) [Concomitant]
     Active Substance: VANCOMYCIN
  5. RAMIPRIL. [Concomitant]
     Active Substance: RAMIPRIL
  6. TAZOCIN (PIPERACILLIN SODIUM, TAZOBACTAM SODIUM) [Concomitant]
  7. HYDROCHLOROTHIAZIDE (HYDROCHLOROTHIAZIDE) [Suspect]
     Active Substance: HYDROCHLOROTHIAZIDE
     Indication: PRODUCT USED FOR UNKNOWN INDICATION
  8. ATORVASTATIN (ATORVASTATIN) [Concomitant]
     Active Substance: ATORVASTATIN

REACTIONS (19)
  - Anion gap increased [None]
  - Hypophagia [None]
  - Blood bicarbonate abnormal [None]
  - Troponin increased [None]
  - Blood pressure decreased [None]
  - Heart rate decreased [None]
  - Diarrhoea [None]
  - Blood potassium increased [None]
  - Cardiac arrest [None]
  - Lactic acidosis [None]
  - Respiratory rate increased [None]
  - Blood chloride decreased [None]
  - Confusional state [None]
  - Intestinal ischaemia [None]
  - Renal failure acute [None]
  - Shock [None]
  - Dehydration [None]
  - Pulseless electrical activity [None]
  - Malaise [None]
